FAERS Safety Report 9660240 (Version 1)
Quarter: 2013Q4

REPORT INFORMATION
  Report Type: Spontaneous
  Country: US (occurrence: US)
  Receive Date: 20131031
  Receipt Date: 20131031
  Transmission Date: 20140711
  Serious: Yes (Other)
  Sender: FDA-Public Use
  Company Number: US-NAPPMUNDI-USA-2011-0067577

PATIENT
  Age: 24 Year
  Sex: Female

DRUGS (5)
  1. OXYCONTIN TABLETS [Suspect]
     Indication: PAIN
  2. VICODIN [Suspect]
     Indication: PAIN
  3. METHADONE [Suspect]
     Indication: DRUG ABUSE
  4. KLONOPIN [Suspect]
     Indication: DRUG ABUSE
  5. OPIATES [Suspect]
     Indication: DRUG ABUSE

REACTIONS (3)
  - Drug dependence [Unknown]
  - Drug abuse [Unknown]
  - Energy increased [Unknown]
